FAERS Safety Report 16837636 (Version 2)
Quarter: 2019Q4

REPORT INFORMATION
  Report Type: Spontaneous
  Country: ES (occurrence: ES)
  Receive Date: 20190923
  Receipt Date: 20191029
  Transmission Date: 20200122
  Serious: Yes (Other)
  Sender: FDA-Public Use
  Company Number: ES-ABBVIE-19K-144-2928795-00

PATIENT
  Sex: Male
  Weight: 64.8 kg

DRUGS (2)
  1. HUMIRA [Suspect]
     Active Substance: ADALIMUMAB
     Indication: CROHN^S DISEASE
     Route: 058
     Dates: start: 201508
  2. IMUREL [Concomitant]
     Active Substance: AZATHIOPRINE SODIUM
     Indication: PRODUCT USED FOR UNKNOWN INDICATION
     Dosage: 3 PILLS
     Route: 065

REACTIONS (28)
  - Ureterolithiasis [Unknown]
  - Joint warmth [Unknown]
  - Depressive symptom [Unknown]
  - Arthritis [Unknown]
  - Crohn^s disease [Unknown]
  - Feeling hot [Unknown]
  - Nephrocalcinosis [Unknown]
  - Gastrointestinal hypomotility [Unknown]
  - Arthralgia [Unknown]
  - Pain in extremity [Unknown]
  - Ligament pain [Unknown]
  - Suicidal ideation [Unknown]
  - Oesophageal disorder [Unknown]
  - Gastric disorder [Unknown]
  - Faecal calprotectin increased [Unknown]
  - Cervical spinal stenosis [Unknown]
  - Loss of personal independence in daily activities [Unknown]
  - Inflammatory pain [Unknown]
  - Arthralgia [Unknown]
  - Fatigue [Unknown]
  - Depressed mood [Unknown]
  - Arthralgia [Unknown]
  - Inflammatory bowel disease [Unknown]
  - Vertebral osteophyte [Unknown]
  - Intervertebral disc protrusion [Unknown]
  - Joint noise [Unknown]
  - Choking sensation [Unknown]
  - Apathy [Unknown]

NARRATIVE: CASE EVENT DATE: 2017
